FAERS Safety Report 16129326 (Version 1)
Quarter: 2019Q1

REPORT INFORMATION
  Report Type: Spontaneous
  Country: CZ (occurrence: CZ)
  Receive Date: 20190328
  Receipt Date: 20190328
  Transmission Date: 20190418
  Serious: Yes (Other)
  Sender: FDA-Public Use
  Company Number: PHHY2018CZ035626

PATIENT
  Age: 89 Year
  Sex: Female
  Weight: 44 kg

DRUGS (12)
  1. ALENDRONIC ACID [Interacting]
     Active Substance: ALENDRONIC ACID
     Indication: PRODUCT USED FOR UNKNOWN INDICATION
     Dosage: UNK
     Route: 065
  2. PENTOMER [Suspect]
     Active Substance: PENTOXIFYLLINE
     Indication: PRODUCT USED FOR UNKNOWN INDICATION
     Dosage: 400 MG, (RETRAD)
     Route: 065
  3. MILURIT [Concomitant]
     Active Substance: ALLOPURINOL
     Indication: PRODUCT USED FOR UNKNOWN INDICATION
     Dosage: 300 MG, QD
     Route: 065
  4. DIGOXIN. [Suspect]
     Active Substance: DIGOXIN
     Indication: PRODUCT USED FOR UNKNOWN INDICATION
     Dosage: 0.13 UG, QD
     Route: 048
  5. FURON [Suspect]
     Active Substance: FUROSEMIDE
     Indication: PRODUCT USED FOR UNKNOWN INDICATION
     Dosage: 40 MG, UNK
     Route: 065
  6. WARFARIN [Concomitant]
     Active Substance: WARFARIN
     Indication: PRODUCT USED FOR UNKNOWN INDICATION
     Dosage: 1-0-0
     Route: 065
  7. SPIRONOLACTONE. [Interacting]
     Active Substance: SPIRONOLACTONE
     Indication: PRODUCT USED FOR UNKNOWN INDICATION
     Dosage: 25 MG, QD
     Route: 065
  8. CARVEDILOL. [Interacting]
     Active Substance: CARVEDILOL
     Indication: PRODUCT USED FOR UNKNOWN INDICATION
     Route: 065
  9. AMIODARONE [Interacting]
     Active Substance: AMIODARONE
     Indication: PRODUCT USED FOR UNKNOWN INDICATION
     Dosage: 200 MG, QD
     Route: 065
  10. DITHIADEN [Concomitant]
     Active Substance: BISULEPIN
     Indication: PRODUCT USED FOR UNKNOWN INDICATION
     Dosage: UNK UNK, QD
     Route: 065
  11. SECATOXIN [Interacting]
     Active Substance: ERGOLOID MESYLATES
     Indication: PRODUCT USED FOR UNKNOWN INDICATION
     Dosage: GTT; 20-20-20
     Route: 065
  12. AIRFLUSAN FORSPIRO [Concomitant]
     Active Substance: FLUTICASONE PROPIONATE\SALMETEROL XINAFOATE
     Indication: PRODUCT USED FOR UNKNOWN INDICATION
     Dosage: 1-0-1; 50/250
     Route: 065

REACTIONS (7)
  - Hyperkalaemia [Unknown]
  - Overdose [Unknown]
  - Labelled drug-drug interaction medication error [Unknown]
  - Bradycardia [Unknown]
  - Cardioactive drug level increased [Unknown]
  - Fall [Unknown]
  - Hypotension [Unknown]
